FAERS Safety Report 25147981 (Version 1)
Quarter: 2025Q2

REPORT INFORMATION
  Report Type: Spontaneous
  Country: PT (occurrence: PT)
  Receive Date: 20250402
  Receipt Date: 20250402
  Transmission Date: 20250717
  Serious: No
  Sender: EXELA PHARMA SCIENCES
  Company Number: US-EXELAPHARMA-2025EXLA00028

PATIENT
  Age: 51 Year
  Sex: Male

DRUGS (8)
  1. FENTANYL CITRATE [Suspect]
     Active Substance: FENTANYL CITRATE
     Indication: Adjuvant therapy
     Route: 062
  2. FENTANYL CITRATE [Suspect]
     Active Substance: FENTANYL CITRATE
     Indication: Anxiety
     Route: 062
  3. PREGABALIN [Concomitant]
     Active Substance: PREGABALIN
  4. PREGABALIN [Concomitant]
     Active Substance: PREGABALIN
  5. SENNA [Concomitant]
     Active Substance: SENNOSIDES
  6. CLONAZEPAM [Concomitant]
     Active Substance: CLONAZEPAM
     Indication: Insomnia
     Dosage: 0.5 MG AT BEDTIME
  7. CLONAZEPAM [Concomitant]
     Active Substance: CLONAZEPAM
     Indication: Anxiety
  8. MORPHINE [Concomitant]
     Active Substance: MORPHINE
     Indication: Breakthrough pain
     Route: 048

REACTIONS (5)
  - Face oedema [Recovered/Resolved]
  - Tongue oedema [Recovered/Resolved]
  - Facial pain [Recovered/Resolved]
  - Salivary hypersecretion [Recovered/Resolved]
  - Off label use [Unknown]
